FAERS Safety Report 13290044 (Version 2)
Quarter: 2017Q1

REPORT INFORMATION
  Report Type: Spontaneous
  Country: US (occurrence: US)
  Receive Date: 20170302
  Receipt Date: 20170306
  Transmission Date: 20170428
  Serious: Yes (Death, Other)
  Sender: FDA-Public Use
  Company Number: US-PFIZER INC-2017089471

PATIENT
  Age: 71 Year
  Sex: Female
  Weight: 82.6 kg

DRUGS (1)
  1. IBRANCE [Suspect]
     Active Substance: PALBOCICLIB
     Indication: BREAST CANCER METASTATIC
     Dosage: 125 MG, CYCLIC, (DAILY FOR 21 DAYS AND THEN 7 DAYS OFF)
     Route: 048
     Dates: start: 20160927, end: 20170210

REACTIONS (1)
  - Neoplasm progression [Fatal]
